FAERS Safety Report 6569177-6 (Version None)
Quarter: 2010Q1

REPORT INFORMATION
  Report Type: 
  Country: None (occurrence: None)
  Receive Date: 20100201
  Receipt Date: 20100201
  Transmission Date: 20100710
  Serious: Yes (Hospitalization)
  Sender: FDA-Public Use
  Company Number: None

PATIENT
  Age: 65 Year
  Sex: Male

DRUGS (1)
  1. NITROFURANTOIN [Suspect]
     Indication: URINARY TRACT INFECTION
     Dosage: 100 MG BID PO
     Route: 048
     Dates: start: 20100114, end: 20100123

REACTIONS (8)
  - EAR DISCOMFORT [None]
  - EYE IRRITATION [None]
  - EYE PRURITUS [None]
  - EYE SWELLING [None]
  - PRURITUS [None]
  - RASH PAPULAR [None]
  - SKIN BURNING SENSATION [None]
  - SWELLING FACE [None]
